FAERS Safety Report 8329865-8 (Version None)
Quarter: 2012Q2

REPORT INFORMATION
  Report Type: 
  Country: None (occurrence: None)
  Receive Date: 20120502
  Receipt Date: 20120424
  Transmission Date: 20120825
  Serious: Yes (Other)
  Sender: FDA-Public Use
  Company Number: US-VERTEX PHARMACEUTICALS INC.-AE-2012-002285

PATIENT
  Age: 50 Year
  Sex: Male

DRUGS (7)
  1. INCIVEK [Suspect]
     Indication: HEPATITIS C
     Route: 050
     Dates: start: 20120101, end: 20120229
  2. PEGINTERFERON ALFA-2A [Concomitant]
     Indication: HEPATITIS C
  3. TRUVADA [Concomitant]
  4. PREZISTA [Concomitant]
  5. WELLBUTRIN [Concomitant]
  6. RIBAVIRIN [Concomitant]
     Indication: HEPATITIS C
  7. NORVIR [Concomitant]

REACTIONS (3)
  - OFF LABEL USE [None]
  - ERYTHEMA MULTIFORME [None]
  - INJECTION SITE INFLAMMATION [None]
